FAERS Safety Report 15340485 (Version 2)
Quarter: 2018Q3

REPORT INFORMATION
  Report Type: Spontaneous
  Country: US (occurrence: US)
  Receive Date: 20180831
  Receipt Date: 20180921
  Transmission Date: 20181010
  Serious: No
  Sender: FDA-Public Use
  Company Number: US-BRISTOL-MYERS SQUIBB COMPANY-BMS-2018-078664

PATIENT
  Age: 69 Year
  Sex: Female
  Weight: 73.16 kg

DRUGS (1)
  1. ORENCIA [Suspect]
     Active Substance: ABATACEPT
     Indication: PSORIATIC ARTHROPATHY
     Dosage: 750 MG, UNK
     Route: 042
     Dates: start: 201806

REACTIONS (3)
  - Drug ineffective [Unknown]
  - Road traffic accident [Unknown]
  - Alopecia [Unknown]

NARRATIVE: CASE EVENT DATE: 20180820
